FAERS Safety Report 7120712-9 (Version None)
Quarter: 2010Q4

REPORT INFORMATION
  Report Type: 
  Country: None (occurrence: None)
  Receive Date: 20101124
  Receipt Date: 20101111
  Transmission Date: 20110411
  Serious: Yes (Other)
  Sender: FDA-Public Use
  Company Number: TR-TYCO HEALTHCARE/MALLINCKRODT-T201002340

PATIENT
  Age: 68 Year
  Sex: Male

DRUGS (2)
  1. EXALGO [Suspect]
     Indication: PAIN
     Dosage: 8 MG, UNK
     Route: 048
     Dates: start: 20101110
  2. LAROXYL [Suspect]
     Indication: PRODUCT USED FOR UNKNOWN INDICATION
     Dosage: UNK, IN THE EVENING

REACTIONS (5)
  - ACTIVITIES OF DAILY LIVING IMPAIRED [None]
  - CHILLS [None]
  - LOSS OF CONSCIOUSNESS [None]
  - MEMORY IMPAIRMENT [None]
  - SPEECH DISORDER [None]
